FAERS Safety Report 19531678 (Version 2)
Quarter: 2021Q3

REPORT INFORMATION
  Report Type: Spontaneous
  Country: GB (occurrence: GB)
  Receive Date: 20210713
  Receipt Date: 20210727
  Transmission Date: 20211014
  Serious: Yes (Death, Other)
  Sender: FDA-Public Use
  Company Number: GB-CELGENEUS-GBR-20210100223

PATIENT
  Age: 55 Year
  Sex: Female

DRUGS (33)
  1. ZOLEDRONIC ACID [Concomitant]
     Active Substance: ZOLEDRONIC ACID
     Indication: PRODUCT USED FOR UNKNOWN INDICATION
     Route: 065
  2. ABRAXANE [Suspect]
     Active Substance: PACLITAXEL
     Dosage: 450 MILLIGRAM
     Route: 041
     Dates: start: 20170816, end: 20170906
  3. TRASTUZUMAB. [Suspect]
     Active Substance: TRASTUZUMAB
     Dosage: 525 MILLIGRAM
     Route: 041
     Dates: start: 20170524
  4. TRASTUZUMAB. [Suspect]
     Active Substance: TRASTUZUMAB
     Dosage: 356 MILLIGRAM
     Route: 041
     Dates: start: 20170614, end: 20180425
  5. METRONIDAZOLE. [Concomitant]
     Active Substance: METRONIDAZOLE
     Indication: PRODUCT USED FOR UNKNOWN INDICATION
     Dosage: 400 MILLIGRAM
     Route: 065
     Dates: start: 20200909, end: 20200914
  6. APIXABAN [Concomitant]
     Active Substance: APIXABAN
     Dosage: 5 MILLIGRAM
     Route: 065
     Dates: start: 20190917
  7. ABRAXANE [Suspect]
     Active Substance: PACLITAXEL
     Indication: HER2 POSITIVE BREAST CANCER
     Dosage: 450 MILLIGRAM
     Route: 041
     Dates: start: 20170614
  8. TRASTUZUMAB. [Suspect]
     Active Substance: TRASTUZUMAB
     Dosage: 356 MILLIGRAM
     Route: 041
     Dates: start: 20180516, end: 20190327
  9. PERTUZUMAB. [Suspect]
     Active Substance: PERTUZUMAB
     Indication: HER2 POSITIVE BREAST CANCER
     Dosage: 230 MILLIGRAM
     Route: 065
     Dates: start: 20170524
  10. AMOXICILLIN. [Concomitant]
     Active Substance: AMOXICILLIN
     Indication: PYREXIA
  11. DOMPERIDONE [Concomitant]
     Active Substance: DOMPERIDONE
     Indication: PRODUCT USED FOR UNKNOWN INDICATION
     Dosage: 10 MILLIGRAM
     Route: 065
     Dates: start: 20170523
  12. SANDO?K [Concomitant]
     Indication: PRODUCT USED FOR UNKNOWN INDICATION
     Dosage: 5 DAY
     Route: 065
  13. ABRAXANE [Suspect]
     Active Substance: PACLITAXEL
     Dosage: 375 MILLIGRAM
     Route: 041
     Dates: start: 20170705, end: 20170726
  14. CARMELLOSE [Concomitant]
     Active Substance: CARBOXYMETHYLCELLULOSE
     Indication: PRODUCT USED FOR UNKNOWN INDICATION
     Route: 060
     Dates: start: 20170526
  15. CHLORHEXIDINE GLUCONATE. [Concomitant]
     Active Substance: CHLORHEXIDINE GLUCONATE
     Indication: PRODUCT USED FOR UNKNOWN INDICATION
     Dosage: 10 MILLILITER
     Route: 065
     Dates: start: 20170525
  16. TRASTUZUMAB. [Suspect]
     Active Substance: TRASTUZUMAB
     Indication: HER2 POSITIVE BREAST CANCER
     Dosage: 525 MILLIGRAM
     Route: 041
  17. AMOXICILLIN. [Concomitant]
     Active Substance: AMOXICILLIN
     Indication: ABDOMINAL PAIN
     Dosage: 1875 MILLIGRAM
     Route: 065
     Dates: start: 20201211, end: 20201216
  18. VANCOMYCIN [Concomitant]
     Active Substance: VANCOMYCIN
     Dosage: 2000 MILLIGRAM
     Route: 065
     Dates: start: 20201104, end: 20201113
  19. CALCIUM D3 [Concomitant]
     Active Substance: CALCIUM\CHOLECALCIFEROL
     Indication: PRODUCT USED FOR UNKNOWN INDICATION
     Route: 065
  20. CETIRIZINE [Concomitant]
     Active Substance: CETIRIZINE HYDROCHLORIDE
     Indication: PRODUCT USED FOR UNKNOWN INDICATION
     Route: 065
  21. LOPERAMIDE [Concomitant]
     Active Substance: LOPERAMIDE
     Indication: PRODUCT USED FOR UNKNOWN INDICATION
     Route: 065
     Dates: start: 20170613
  22. DOCETAXEL. [Suspect]
     Active Substance: DOCETAXEL
     Indication: HER2 POSITIVE BREAST CANCER
     Dosage: 130 MILLIGRAM
     Route: 048
     Dates: start: 20170525, end: 20170525
  23. CAPECITABINE. [Suspect]
     Active Substance: CAPECITABINE
     Indication: BREAST CANCER
     Dosage: 245 MILLIGRAM
     Route: 048
     Dates: start: 20201020
  24. VANCOMYCIN [Concomitant]
     Active Substance: VANCOMYCIN
     Indication: PRODUCT USED FOR UNKNOWN INDICATION
     Dosage: 500 MILLIGRAM
     Route: 048
     Dates: start: 20201030
  25. LANSOPRAZOLE. [Concomitant]
     Active Substance: LANSOPRAZOLE
     Indication: PRODUCT USED FOR UNKNOWN INDICATION
     Route: 065
  26. PARACETAMOL [Concomitant]
     Active Substance: ACETAMINOPHEN
     Indication: PRODUCT USED FOR UNKNOWN INDICATION
     Route: 065
     Dates: start: 20170525
  27. ARTIFICIAL SALIVA [Concomitant]
     Indication: PRODUCT USED FOR UNKNOWN INDICATION
     Route: 065
     Dates: start: 20170526
  28. PERTUZUMAB. [Suspect]
     Active Substance: PERTUZUMAB
     Dosage: 420 MILLIGRAM
     Route: 065
     Dates: start: 20170614, end: 20190327
  29. TINZAPARIN [Concomitant]
     Active Substance: TINZAPARIN
     Indication: PRODUCT USED FOR UNKNOWN INDICATION
     Dosage: 4500 IU (INTERNATIONAL UNIT)
     Route: 058
     Dates: start: 20190918
  30. APIXABAN [Concomitant]
     Active Substance: APIXABAN
     Indication: PRODUCT USED FOR UNKNOWN INDICATION
     Dosage: 5 MILLIGRAM
     Route: 065
     Dates: start: 20190819
  31. CLOBETASOL PROPIONATE. [Concomitant]
     Active Substance: CLOBETASOL PROPIONATE
     Indication: PRODUCT USED FOR UNKNOWN INDICATION
     Route: 065
     Dates: start: 20170210
  32. AMITRIPTYLINE HCL [Concomitant]
     Active Substance: AMITRIPTYLINE
     Indication: PRODUCT USED FOR UNKNOWN INDICATION
     Dosage: 5 MILLIGRAM
     Route: 065
  33. CHLORPHENIRAMINE. [Concomitant]
     Active Substance: CHLORPHENIRAMINE
     Indication: PRODUCT USED FOR UNKNOWN INDICATION
     Route: 065

REACTIONS (6)
  - Device related infection [Fatal]
  - Tenosynovitis [Fatal]
  - Biliary sepsis [Fatal]
  - Disease progression [Fatal]
  - Epistaxis [Not Recovered/Not Resolved]
  - Sinus tachycardia [Recovered/Resolved]

NARRATIVE: CASE EVENT DATE: 201904
